FAERS Safety Report 6221602-6 (Version None)
Quarter: 2009Q2

REPORT INFORMATION
  Report Type: 
  Country: None (occurrence: None)
  Receive Date: 20090608
  Receipt Date: 20090529
  Transmission Date: 20091009
  Serious: Yes (Life-Threatening, Hospitalization)
  Sender: FDA-Public Use
  Company Number: WAES 0902USA02364

PATIENT
  Age: 73 Year
  Sex: Male

DRUGS (17)
  1. ZETIA [Suspect]
     Indication: HYPERCHOLESTEROLAEMIA
     Dosage: 10 MG/DAILY PO
     Route: 048
     Dates: start: 20080604, end: 20090206
  2. ACTOS [Concomitant]
  3. AMLODIPINE [Concomitant]
  4. AZUNOL [Concomitant]
  5. ASPIRIN [Concomitant]
  6. ELAVIL [Concomitant]
  7. HACHIMI-JIO-GAN [Concomitant]
  8. HYPEN [Concomitant]
  9. LENDORMIN [Concomitant]
  10. MICARDIS [Concomitant]
  11. NITOROL-R [Concomitant]
  12. NITROPEN [Concomitant]
  13. SPELEAR [Concomitant]
  14. TAKEPRON [Concomitant]
  15. TALION [Concomitant]
  16. URIEF [Concomitant]
  17. ZOCOR [Concomitant]

REACTIONS (1)
  - AORTIC DISSECTION [None]
